FAERS Safety Report 13576727 (Version 1)
Quarter: 2017Q2

REPORT INFORMATION
  Report Type: Spontaneous
  Country: US (occurrence: US)
  Receive Date: 20170524
  Receipt Date: 20170524
  Transmission Date: 20170830
  Serious: No
  Sender: FDA-Public Use
  Company Number: None

PATIENT

DRUGS (1)
  1. TROPICAMIDE OPHTH SOLN [Suspect]
     Active Substance: TROPICAMIDE
     Route: 047

REACTIONS (1)
  - Product packaging issue [None]

NARRATIVE: CASE EVENT DATE: 20170524
